FAERS Safety Report 13937198 (Version 2)
Quarter: 2017Q3

REPORT INFORMATION
  Report Type: Spontaneous
  Country: US (occurrence: US)
  Receive Date: 20170905
  Receipt Date: 20170913
  Transmission Date: 20171127
  Serious: No
  Sender: FDA-Public Use
  Company Number: US-PFIZER INC-2017378084

PATIENT
  Age: 69 Year
  Sex: Female
  Weight: 68.4 kg

DRUGS (1)
  1. EUCRISA [Suspect]
     Active Substance: CRISABOROLE
     Indication: DERMATITIS
     Dosage: A DAB ON THE END OF A Q-TIP AND RUBBED ACROSS UNDER THE EYE
     Dates: start: 20170828, end: 20170828

REACTIONS (4)
  - Erythema [Recovering/Resolving]
  - Scar [Recovering/Resolving]
  - Skin burning sensation [Recovered/Resolved]
  - Dry skin [Recovering/Resolving]

NARRATIVE: CASE EVENT DATE: 20170828
